FAERS Safety Report 9524197 (Version 1)
Quarter: 2013Q1

REPORT INFORMATION
  Report Type: Spontaneous
  Country: US (occurrence: None)
  Receive Date: 20130305
  Receipt Date: 20130305
  Transmission Date: 20140127
  Serious: Yes (Other)
  Sender: FDA-Public Use
  Company Number: 163-21880-12031033

PATIENT
  Age: 82 Year
  Sex: Female

DRUGS (6)
  1. REVLIMID [Suspect]
     Indication: PLASMA CELL MYELOMA
     Dosage: 10 MG, 21 IN 21 D, PO
     Route: 048
     Dates: start: 20110428
  2. ADVAIR (SERETIDE MITE) (UNKNOWN) [Concomitant]
  3. ALBUTEROL (SALBUTAMOL) (IUNKNOWN) [Concomitant]
  4. CIPROFLOXACIN (CIPROFLOXACIN) (UNKNOWN) [Concomitant]
  5. LEVAQUIN (LEVOFLOXACIN) (UNKNOWN) [Concomitant]
  6. PROPRANOLOL (PROPRANOLOL) (UNKNOWN) [Concomitant]

REACTIONS (3)
  - Diarrhoea [None]
  - Rash [None]
  - Fatigue [None]
